FAERS Safety Report 19598384 (Version 1)
Quarter: 2021Q3

REPORT INFORMATION
  Report Type: Report from Study
  Country: BR (occurrence: BR)
  Receive Date: 20210722
  Receipt Date: 20210722
  Transmission Date: 20211014
  Serious: Yes (Other)
  Sender: FDA-Public Use
  Company Number: NVSC2021BR049399

PATIENT
  Age: 56 Year
  Sex: Male

DRUGS (1)
  1. COSENTYX [Suspect]
     Active Substance: SECUKINUMAB
     Indication: PSORIASIS
     Dosage: 300 MG, UNKNOWN
     Route: 065
     Dates: start: 20210219

REACTIONS (4)
  - Pyrexia [Recovered/Resolved]
  - Hepatitis [Unknown]
  - Chills [Recovered/Resolved]
  - Investigation abnormal [Unknown]

NARRATIVE: CASE EVENT DATE: 20210219
